FAERS Safety Report 11112141 (Version 1)
Quarter: 2015Q2

REPORT INFORMATION
  Report Type: Spontaneous
  Country: GB (occurrence: GB)
  Receive Date: 20150514
  Receipt Date: 20150514
  Transmission Date: 20150821
  Serious: Yes (Disabling)
  Sender: FDA-Public Use
  Company Number: GB-WATSON-2015-09812

PATIENT
  Age: 16 Year
  Sex: Female
  Weight: 51 kg

DRUGS (5)
  1. METOCLOPRAMIDE. [Suspect]
     Active Substance: METOCLOPRAMIDE
     Indication: PRODUCT USED FOR UNKNOWN INDICATION
     Dosage: UNK
     Route: 048
     Dates: start: 20150423
  2. MEBEVERINE HYDROCHLORIDE [Concomitant]
     Active Substance: MEBEVERINE HYDROCHLORIDE
     Indication: PRODUCT USED FOR UNKNOWN INDICATION
     Dosage: 1 DF, TID
     Route: 065
     Dates: start: 20150422
  3. INTAL [Concomitant]
     Active Substance: CROMOLYN SODIUM
     Indication: PRODUCT USED FOR UNKNOWN INDICATION
     Dosage: 1 GTT DROP(S), QID; ONE DROP INTO EACH EYE
     Route: 047
     Dates: start: 20140512
  4. CODEINE PHOSPHATE [Concomitant]
     Active Substance: CODEINE PHOSPHATE
     Indication: PRODUCT USED FOR UNKNOWN INDICATION
     Dosage: 1 DF, QID
     Route: 065
     Dates: start: 20150422
  5. RIGEVIDON                          /00022701/ [Concomitant]
     Indication: PRODUCT USED FOR UNKNOWN INDICATION
     Dosage: 1 DF, DAILY
     Route: 065
     Dates: start: 20150313

REACTIONS (3)
  - Limb discomfort [Unknown]
  - Visual impairment [Unknown]
  - Tremor [Unknown]

NARRATIVE: CASE EVENT DATE: 20150423
